FAERS Safety Report 8268594-6 (Version None)
Quarter: 2012Q2

REPORT INFORMATION
  Report Type: 
  Country: None (occurrence: None)
  Receive Date: 20120409
  Receipt Date: 20120406
  Transmission Date: 20120825
  Serious: Yes (Other)
  Sender: FDA-Public Use
  Company Number: CN-BRACCO-000285

PATIENT
  Age: 68 Year
  Sex: Female

DRUGS (2)
  1. IOPAMIDOL [Suspect]
     Indication: COMPUTERISED TOMOGRAM ABDOMEN
     Route: 047
     Dates: start: 20120201, end: 20120201
  2. IOPAMIDOL [Suspect]
     Indication: ADRENAL ADENOMA
     Route: 047
     Dates: start: 20120201, end: 20120201

REACTIONS (8)
  - INCORRECT ROUTE OF DRUG ADMINISTRATION [None]
  - EYE PAIN [None]
  - FOREIGN BODY SENSATION IN EYES [None]
  - OCULAR HYPERAEMIA [None]
  - ABNORMAL SENSATION IN EYE [None]
  - EYE IRRITATION [None]
  - DRY EYE [None]
  - VISUAL ACUITY REDUCED [None]
